FAERS Safety Report 5523161-X (Version None)
Quarter: 2007Q4

REPORT INFORMATION
  Report Type: 
  Country: None (occurrence: None)
  Receive Date: 20071116
  Receipt Date: 20071108
  Transmission Date: 20080405
  Serious: Yes (Other)
  Sender: FDA-Public Use
  Company Number: CHPA2007US12097

PATIENT
  Age: 47 Year
  Sex: Female

DRUGS (1)
  1. CVS   (NICOTINE) TRANS-THERAPEUTIC-SYSTEM [Suspect]
     Indication: SMOKING CESSATION THERAPY
     Dosage: 14 MG, TRANSDERMAL
     Route: 062
     Dates: start: 20070901

REACTIONS (4)
  - ARTHRALGIA [None]
  - INCORRECT DOSE ADMINISTERED [None]
  - LARYNGEAL DYSPLASIA [None]
  - VOCAL CORD NEOPLASM [None]
